FAERS Safety Report 4457907-9 (Version None)
Quarter: 2004Q3

REPORT INFORMATION
  Report Type: 
  Country: None (occurrence: None)
  Receive Date: 20040924
  Receipt Date: 20040914
  Transmission Date: 20050211
  Serious: Yes (Hospitalization)
  Sender: FDA-Public Use
  Company Number: BE-JNJFOC-20040904716

PATIENT
  Age: 12 Month
  Sex: Female

DRUGS (1)
  1. PROPULSID [Suspect]
     Route: 049
     Dates: start: 20031001

REACTIONS (1)
  - FUNDOPLICATION [None]
